FAERS Safety Report 8456227-5 (Version None)
Quarter: 2012Q2

REPORT INFORMATION
  Report Type: 
  Country: None (occurrence: None)
  Receive Date: 20120621
  Receipt Date: 20120612
  Transmission Date: 20120825
  Serious: Yes (Other)
  Sender: FDA-Public Use
  Company Number: US-ABBOTT-12P-163-0937652-00

PATIENT
  Sex: Female

DRUGS (17)
  1. COGENTIN [Concomitant]
     Indication: PRODUCT USED FOR UNKNOWN INDICATION
  2. UNKNOWN EYE DROPS [Concomitant]
     Indication: PRODUCT USED FOR UNKNOWN INDICATION
  3. TRAZODONE HCL [Concomitant]
     Indication: PRODUCT USED FOR UNKNOWN INDICATION
  4. SEROQUEL [Concomitant]
     Indication: INSOMNIA
  5. PRAVASTATIN [Concomitant]
     Indication: PRODUCT USED FOR UNKNOWN INDICATION
  6. PERPHENAZINE [Concomitant]
     Indication: AFFECTIVE DISORDER
     Dosage: DAILY
  7. PERCOCET [Concomitant]
     Indication: PRODUCT USED FOR UNKNOWN INDICATION
  8. RITALIN [Concomitant]
     Indication: ATTENTION DEFICIT/HYPERACTIVITY DISORDER
     Dosage: DAILY
  9. DEPAKOTE ER [Suspect]
     Indication: BORDERLINE PERSONALITY DISORDER
     Dosage: AT BEDTIME
     Dates: start: 20120329
  10. DOXEPIN [Concomitant]
     Indication: PRODUCT USED FOR UNKNOWN INDICATION
  11. GABAPENTIN [Concomitant]
     Indication: ANXIETY
     Dosage: DAILY
  12. ADVAIR DISKUS 100/50 [Concomitant]
     Indication: PRODUCT USED FOR UNKNOWN INDICATION
  13. ATRIPLA [Concomitant]
     Indication: HIV INFECTION
  14. SYNTHROID [Concomitant]
     Indication: PRODUCT USED FOR UNKNOWN INDICATION
  15. SEROQUEL [Concomitant]
     Indication: AFFECTIVE DISORDER
     Dosage: DAILY
  16. DEPAKOTE ER [Suspect]
     Indication: AFFECTIVE DISORDER
  17. COMBIVENT [Concomitant]
     Indication: PRODUCT USED FOR UNKNOWN INDICATION

REACTIONS (7)
  - VOMITING [None]
  - PEPTIC ULCER [None]
  - DECREASED APPETITE [None]
  - OFF LABEL USE [None]
  - NAUSEA [None]
  - WEIGHT DECREASED [None]
  - PANCREATITIS [None]
